FAERS Safety Report 9472928 (Version 1)
Quarter: 2013Q3

REPORT INFORMATION
  Report Type: Spontaneous
  Country: US (occurrence: US)
  Receive Date: 20130823
  Receipt Date: 20130823
  Transmission Date: 20140515
  Serious: No
  Sender: FDA-Public Use
  Company Number: US-BRISTOL-MYERS SQUIBB COMPANY-17244831

PATIENT
  Age: 41 Year
  Sex: Female
  Weight: 68.03 kg

DRUGS (4)
  1. SPRYCEL (CML) TABS 50 MG [Suspect]
     Dates: start: 201203
  2. ESCITALOPRAM [Concomitant]
  3. FISH OIL [Concomitant]
  4. MULTIVITAMINS [Concomitant]

REACTIONS (2)
  - Dyspnoea [Recovering/Resolving]
  - Local swelling [Recovering/Resolving]
